FAERS Safety Report 10084205 (Version 2)
Quarter: 2014Q2

REPORT INFORMATION
  Report Type: Spontaneous
  Country: US (occurrence: US)
  Receive Date: 20140417
  Receipt Date: 20140417
  Transmission Date: 20141212
  Serious: Yes (Other)
  Sender: FDA-Public Use
  Company Number: US-CELGENEUS-163-21880-13111553

PATIENT
  Age: 86 Year
  Sex: Female
  Weight: 56.7 kg

DRUGS (1)
  1. REVLIMID [Suspect]
     Indication: PLASMA CELL MYELOMA
     Dosage: 15 MILLIGRAM
     Route: 048
     Dates: start: 20130829

REACTIONS (3)
  - Dementia Alzheimer^s type [Unknown]
  - Tremor [Recovering/Resolving]
  - Dehydration [Recovered/Resolved]
